FAERS Safety Report 7609218-8 (Version None)
Quarter: 2011Q3

REPORT INFORMATION
  Report Type: 
  Country: None (occurrence: None)
  Receive Date: 20110713
  Receipt Date: 20110713
  Transmission Date: 20111222
  Serious: Yes (Other)
  Sender: FDA-Public Use
  Company Number: None

PATIENT
  Sex: Female
  Weight: 70.3075 kg

DRUGS (1)
  1. REMICADE [Suspect]
     Indication: CROHN'S DISEASE
     Dosage: EVERY 8 WEEKS IV DRIP
     Route: 041
     Dates: start: 20060909, end: 20110501

REACTIONS (3)
  - BLISTER [None]
  - SECRETION DISCHARGE [None]
  - RASH [None]
